FAERS Safety Report 9563091 (Version 1)
Quarter: 2013Q3

REPORT INFORMATION
  Report Type: Spontaneous
  Country: US (occurrence: US)
  Receive Date: 20130927
  Receipt Date: 20130927
  Transmission Date: 20140515
  Serious: No
  Sender: FDA-Public Use
  Company Number: US-BRISTOL-MYERS SQUIBB COMPANY-17083197

PATIENT
  Age: 69 Year
  Sex: Male
  Weight: 77.1 kg

DRUGS (3)
  1. ONGLYZA TABS 2.5 MG [Suspect]
     Dosage: ONE ON FRIDAY MRNG AND ONE ON SATDAY MRNG, INTER: 28OCT12
  2. ASPIRIN [Concomitant]
  3. MICARDIS [Concomitant]
     Indication: BLOOD PRESSURE

REACTIONS (1)
  - Headache [Recovering/Resolving]
